FAERS Safety Report 22096055 (Version 1)
Quarter: 2023Q1

REPORT INFORMATION
  Report Type: Spontaneous
  Country: US (occurrence: US)
  Receive Date: 20230315
  Receipt Date: 20230315
  Transmission Date: 20230417
  Serious: Yes (Hospitalization, Other)
  Sender: FDA-Public Use
  Company Number: US-MALLINCKRODT-MNK202300165

PATIENT
  Age: 92 Year
  Sex: Female
  Weight: 39 kg

DRUGS (1)
  1. CORTICOTROPIN [Suspect]
     Active Substance: CORTICOTROPIN
     Indication: Rheumatoid arthritis
     Dosage: 1 ML (80 UNITS), TWO TIMES PER WEEK
     Route: 058
     Dates: start: 202210

REACTIONS (2)
  - Rheumatoid arthritis [Not Recovered/Not Resolved]
  - Monoplegia [Not Recovered/Not Resolved]
